FAERS Safety Report 6601258-0 (Version None)
Quarter: 2010Q1

REPORT INFORMATION
  Report Type: 
  Country: None (occurrence: None)
  Receive Date: 20100224
  Receipt Date: 20100224
  Transmission Date: 20100710
  Serious: Yes (Death, Hospitalization)
  Sender: FDA-Public Use
  Company Number: None

PATIENT
  Age: 27 Year
  Sex: Male
  Weight: 77.6 kg

DRUGS (1)
  1. DILANTIN [Suspect]
     Indication: CONVULSION
     Dosage: DILANTIN UNK UNK ORAL 047
     Route: 048

REACTIONS (7)
  - COAGULOPATHY [None]
  - HEADACHE [None]
  - JAUNDICE [None]
  - MALAISE [None]
  - MENTAL STATUS CHANGES [None]
  - RASH [None]
  - SEPSIS [None]
